FAERS Safety Report 7141203-5 (Version None)
Quarter: 2010Q4

REPORT INFORMATION
  Report Type: 
  Country: None (occurrence: None)
  Receive Date: 20101207
  Receipt Date: 20101129
  Transmission Date: 20110411
  Serious: Yes (Other)
  Sender: FDA-Public Use
  Company Number: US-JNJFOC-20101200675

PATIENT
  Sex: Female
  Weight: 47.63 kg

DRUGS (8)
  1. FENTANYL-100 [Suspect]
     Indication: BONE PAIN
     Route: 062
  2. FENTANYL-100 [Suspect]
     Dosage: NDC: 0781-7242-55
     Route: 062
  3. FENTANYL [Suspect]
     Indication: BONE PAIN
     Route: 062
  4. LORTAB [Concomitant]
     Indication: BREAKTHROUGH PAIN
     Dosage: AS NEEDED
     Route: 048
  5. SOMA [Concomitant]
     Indication: MUSCLE SPASMS
     Dosage: AS NEEDED
     Route: 048
  6. XANAX [Concomitant]
     Indication: ANXIETY
     Dosage: AS NEEDED
     Route: 048
  7. PROZAC [Concomitant]
     Indication: DEPRESSION
     Route: 048
  8. BLOOD PRESSURE MEDICATION NOS [Concomitant]
     Indication: HYPERTENSION
     Dosage: ONCE PER DAY
     Route: 048

REACTIONS (8)
  - DEPRESSED LEVEL OF CONSCIOUSNESS [None]
  - DRUG DOSE OMISSION [None]
  - INADEQUATE ANALGESIA [None]
  - INCORRECT DRUG ADMINISTRATION DURATION [None]
  - INSOMNIA [None]
  - MALAISE [None]
  - MUSCLE SPASMS [None]
  - WITHDRAWAL SYNDROME [None]
